FAERS Safety Report 10566624 (Version 2)
Quarter: 2014Q4

REPORT INFORMATION
  Report Type: Report from Study
  Country: PR (occurrence: PR)
  Receive Date: 20141105
  Receipt Date: 20141105
  Transmission Date: 20150529
  Serious: Yes (Hospitalization, Other)
  Sender: FDA-Public Use
  Company Number: PR-ABBVIE-14K-131-1302281-00

PATIENT
  Sex: Male

DRUGS (2)
  1. HYZAAR [Concomitant]
     Active Substance: HYDROCHLOROTHIAZIDE\LOSARTAN POTASSIUM
     Indication: PRODUCT USED FOR UNKNOWN INDICATION
     Dosage: 100/25
  2. HUMIRA [Suspect]
     Active Substance: ADALIMUMAB
     Indication: PSORIASIS
     Route: 058
     Dates: start: 20140703, end: 20141016

REACTIONS (4)
  - Discomfort [Unknown]
  - Vomiting [Not Recovered/Not Resolved]
  - Rash generalised [Not Recovered/Not Resolved]
  - Colitis ulcerative [Not Recovered/Not Resolved]
